FAERS Safety Report 19470313 (Version 1)
Quarter: 2021Q2

REPORT INFORMATION
  Report Type: Spontaneous
  Country: ES (occurrence: ES)
  Receive Date: 20210628
  Receipt Date: 20210628
  Transmission Date: 20210717
  Serious: Yes (Other)
  Sender: FDA-Public Use
  Company Number: ES-TEVA-2021-ES-1925877

PATIENT
  Age: 70 Year
  Sex: Female

DRUGS (8)
  1. DIAZEPAM CINFA 5 MG COMPRIMIDOS EFG , 30 COMPRIMIDOS [Concomitant]
  2. CITALOPRAM MABO 10 MG COMPRIMIDOS RECUBIERTOS CON PELICULA, 28 COMPRIM [Interacting]
     Active Substance: CITALOPRAM HYDROBROMIDE
     Dosage: 10MILLIGRAM
     Route: 048
     Dates: start: 20200416
  3. VALSARTAN/ HIDROCLOROTIAZIDA CINFAMED 320MG/12.5MG COMPRIMIDOS RECUBIE [Concomitant]
  4. ZOLPIDEM TEVAGEN 5 MG COMPRIMIDOS RECUBIERTOS CON PELICULA , 30 COMPRI [Suspect]
     Active Substance: ZOLPIDEM TARTRATE
     Dosage: 5MILLIGRAM
     Route: 048
     Dates: start: 20210603, end: 20210609
  5. ADIRO 100 MG COMPRIMIDOS GASTRORRESISTENTES EFG, 30 COMPRIMIDOS (PVC? [Concomitant]
     Active Substance: ASPIRIN
  6. OMEPRAZOL CINFA 20 MG CAPSULAS DURAS GASTRORRESISTENTES EFG , 28 CAPSU [Concomitant]
  7. ACFOL 5 MG COMPRIMIDOS , 28 COMPRIMIDOS [Concomitant]
  8. EFFERALGAN [Concomitant]
     Active Substance: ACETAMINOPHEN

REACTIONS (2)
  - Serotonin syndrome [Recovered/Resolved]
  - Drug interaction [Unknown]

NARRATIVE: CASE EVENT DATE: 20210603
